FAERS Safety Report 10365872 (Version 1)
Quarter: 2014Q3

REPORT INFORMATION
  Report Type: Spontaneous
  Country: CA (occurrence: None)
  Receive Date: 20140804
  Receipt Date: 20140804
  Transmission Date: 20150326
  Serious: Yes (Other)
  Sender: FDA-Public Use
  Company Number: None

PATIENT
  Age: 59 Year
  Sex: Male
  Weight: 79.38 kg

DRUGS (1)
  1. COVERSYL PLUS [Suspect]
     Active Substance: INDAPAMIDE\PERINDOPRIL
     Indication: BLOOD PRESSURE
     Dosage: 1 PILL  ONCE DAILY TAKEN BY MOUTH?ABOUT 5+YEARS
     Route: 048

REACTIONS (1)
  - Lichen planus [None]

NARRATIVE: CASE EVENT DATE: 20140606
